FAERS Safety Report 13368811 (Version 3)
Quarter: 2019Q1

REPORT INFORMATION
  Report Type: Spontaneous
  Country: US (occurrence: US)
  Receive Date: 20170324
  Receipt Date: 20190208
  Transmission Date: 20190417
  Serious: No
  Sender: FDA-Public Use
  Company Number: US-PFIZER INC-2017127545

PATIENT
  Age: 6 Year
  Sex: Male
  Weight: 48 kg

DRUGS (2)
  1. RAPAMUNE [Suspect]
     Active Substance: SIROLIMUS
     Dosage: 1.5 MG, 2X/DAY
     Dates: start: 201801
  2. RAPAMUNE [Suspect]
     Active Substance: SIROLIMUS
     Indication: LYMPHATIC DISORDER
     Dosage: 1.5 MG, 2X/DAY (1MG TABLET AND 0.5MG TABLET TWICE A DAY)
     Dates: start: 201703

REACTIONS (1)
  - Drug ineffective for unapproved indication [Unknown]

NARRATIVE: CASE EVENT DATE: 201703
